FAERS Safety Report 8436820-6 (Version None)
Quarter: 2012Q2

REPORT INFORMATION
  Report Type: 
  Country: None (occurrence: None)
  Receive Date: 20120614
  Receipt Date: 20120611
  Transmission Date: 20120825
  Serious: Yes (Death, Other)
  Sender: FDA-Public Use
  Company Number: AR-GENZYME-CLOF-1001559

PATIENT
  Age: 11 Year
  Sex: Male

DRUGS (6)
  1. CLOLAR [Suspect]
     Dosage: UNK
     Route: 065
  2. CYCLOPHOSPHAMIDE [Suspect]
     Indication: ACUTE LYMPHOCYTIC LEUKAEMIA
     Dosage: UNK
     Route: 065
  3. CYCLOPHOSPHAMIDE [Suspect]
     Dosage: UNK
     Route: 065
  4. ETOPOSIDE [Suspect]
     Dosage: UNK
     Route: 065
  5. CLOLAR [Suspect]
     Indication: ACUTE LYMPHOCYTIC LEUKAEMIA
     Dosage: UNK
     Route: 065
  6. ETOPOSIDE [Suspect]
     Indication: ACUTE LYMPHOCYTIC LEUKAEMIA
     Dosage: UNK
     Route: 065

REACTIONS (5)
  - HYPOTENSION [None]
  - MULTI-ORGAN FAILURE [None]
  - ELECTROLYTE IMBALANCE [None]
  - CARDIAC FAILURE [None]
  - SEPSIS [None]
